FAERS Safety Report 10607373 (Version 1)
Quarter: 2014Q4

REPORT INFORMATION
  Report Type: Spontaneous
  Country: US (occurrence: None)
  Receive Date: 20141124
  Receipt Date: 20141124
  Transmission Date: 20150529
  Serious: Yes (Hospitalization)
  Sender: FDA-Public Use
  Company Number: None

PATIENT
  Age: 92 Year
  Sex: Male
  Weight: 85 kg

DRUGS (15)
  1. ZOCOR [Concomitant]
     Active Substance: SIMVASTATIN
  2. ASA [Concomitant]
     Active Substance: ASPIRIN
  3. SANCTURA [Concomitant]
     Active Substance: TROSPIUM CHLORIDE
  4. THYROID [Concomitant]
     Active Substance: LEVOTHYROXINE\LIOTHYRONINE
  5. IMODIUM [Concomitant]
     Active Substance: LOPERAMIDE HYDROCHLORIDE
  6. OMNICEF [Concomitant]
     Active Substance: CEFDINIR
  7. NORCO [Concomitant]
     Active Substance: ACETAMINOPHEN\HYDROCODONE BITARTRATE
  8. GLYBURIDE. [Suspect]
     Active Substance: GLYBURIDE
     Indication: TYPE 2 DIABETES MELLITUS
     Dosage: 5MG  BID  PO?CHRONIC
     Route: 048
  9. LASIX [Concomitant]
     Active Substance: FUROSEMIDE
  10. HYZAAR [Concomitant]
     Active Substance: HYDROCHLOROTHIAZIDE\LOSARTAN POTASSIUM
  11. COLCHICINE. [Concomitant]
     Active Substance: COLCHICINE
  12. AMBIEN [Concomitant]
     Active Substance: ZOLPIDEM TARTRATE
  13. XARELTO [Concomitant]
     Active Substance: RIVAROXABAN
  14. NTG [Concomitant]
     Active Substance: NITROGLYCERIN
  15. VITAMIN B12 [Concomitant]
     Active Substance: CYANOCOBALAMIN

REACTIONS (2)
  - Hypoglycaemia [None]
  - Dysarthria [None]

NARRATIVE: CASE EVENT DATE: 20140311
